FAERS Safety Report 9638829 (Version 1)
Quarter: 2013Q4

REPORT INFORMATION
  Report Type: Spontaneous
  Country: US (occurrence: US)
  Receive Date: 20131022
  Receipt Date: 20131022
  Transmission Date: 20140711
  Serious: Yes (Hospitalization)
  Sender: FDA-Public Use
  Company Number: PHEH2013US021889

PATIENT
  Sex: Female

DRUGS (5)
  1. TOBI [Suspect]
     Dosage: UNK UKN, UNK
     Dates: start: 1997
  2. BACLOFEN [Suspect]
     Dosage: UNK UKN, UNK
  3. GABAPENTIN SANDOZ [Suspect]
     Dosage: UNK UKN, UNK
  4. LEVOTHYROXINE [Suspect]
     Dosage: 0.05 MG, UNK
  5. DIAZEPAM [Suspect]
     Dosage: UNK UKN, UNK

REACTIONS (3)
  - Intestinal obstruction [Unknown]
  - Infection [Unknown]
  - Drug intolerance [Unknown]
